FAERS Safety Report 7087833 (Version 2)
Quarter: 2014Q1

REPORT INFORMATION
  Report Type: Report from Study
  Country: NL (occurrence: NL)
  Receive Date: 20090821
  Receipt Date: 20140210
  Transmission Date: 20141002
  Serious: Yes (Hospitalization)
  Sender: FDA-Public Use
  Company Number: NL-CELGENEUS-114-20785-09080860

PATIENT
  Age: 73 Year
  Sex: Female
  Weight: 88 kg

DRUGS (11)
  1. THALIDOMIDE [Suspect]
     Indication: PLASMA CELL MYELOMA
     Dosage: 200 MILLIGRAM
     Route: 048
     Dates: start: 20090707, end: 20090710
  2. THALIDOMIDE [Suspect]
     Dosage: 200 MILLIGRAM
     Route: 048
     Dates: start: 20090525
  3. THALIDOMIDE [Suspect]
     Dosage: 100 MILLIGRAM
     Route: 048
     Dates: start: 20090511
  4. THALIDOMIDE [Suspect]
     Dosage: 100 MILLIGRAM
     Route: 048
     Dates: end: 20090712
  5. DEXAMETHASONE [Suspect]
     Indication: PLASMA CELL MYELOMA
     Dosage: 40 MILLIGRAM
     Route: 048
     Dates: start: 20090707, end: 20090710
  6. DEXAMETHASONE [Suspect]
     Dosage: 40 MILLIGRAM
     Route: 048
     Dates: start: 20090525
  7. DOXORUBICIN [Suspect]
     Indication: PLASMA CELL MYELOMA
     Dosage: 17.73 MILLIGRAM
     Route: 041
     Dates: start: 20090707, end: 20090710
  8. DOXORUBICIN [Suspect]
     Dosage: 17.73 MILLIGRAM
     Route: 041
     Dates: start: 20090525
  9. INDERAL [Concomitant]
     Indication: PRODUCT USED FOR UNKNOWN INDICATION
     Dosage: 40 MILLIGRAM
     Route: 048
     Dates: start: 20071019
  10. ACTONEL [Concomitant]
     Indication: PLASMA CELL MYELOMA
     Route: 048
     Dates: start: 20040712
  11. ACETYLSALICYLIC ACID [Concomitant]
     Indication: PLASMA CELL MYELOMA
     Dosage: 100 MILLIGRAM
     Route: 048
     Dates: start: 20090521

REACTIONS (1)
  - Diverticular perforation [Recovered/Resolved]
